FAERS Safety Report 5591374-7 (Version None)
Quarter: 2008Q1

REPORT INFORMATION
  Report Type: 
  Country: None (occurrence: None)
  Receive Date: 20080111
  Receipt Date: 20080111
  Transmission Date: 20080703
  Serious: No
  Sender: FDA-Public Use
  Company Number: None

PATIENT

DRUGS (1)
  1. SUTENT [Suspect]

REACTIONS (10)
  - CHOLECYSTITIS [None]
  - CHOLELITHIASIS [None]
  - GALLBLADDER DISORDER [None]
  - GALLBLADDER ENLARGEMENT [None]
  - HEART RATE ABNORMAL [None]
  - HEPATOBILIARY SCAN ABNORMAL [None]
  - PERITONEAL EFFUSION [None]
  - PLEURAL EFFUSION [None]
  - PROCEDURAL COMPLICATION [None]
  - RENAL CYST [None]
